FAERS Safety Report 20976633 (Version 1)
Quarter: 2022Q2

REPORT INFORMATION
  Report Type: Spontaneous
  Country: US (occurrence: US)
  Receive Date: 20220617
  Receipt Date: 20220617
  Transmission Date: 20220720
  Serious: No
  Sender: FDA-Public Use
  Company Number: US-MYLANLABS-2022M1042189

PATIENT
  Sex: Male

DRUGS (1)
  1. WIXELA INHUB [Suspect]
     Active Substance: FLUTICASONE PROPIONATE\SALMETEROL XINAFOATE
     Indication: Product used for unknown indication
     Dosage: UNK UNK, BID (250/50 MICROGRAM 2 DOSES A DAY)
     Route: 055
     Dates: start: 20220527

REACTIONS (3)
  - Product closure removal difficult [Unknown]
  - Product delivery mechanism issue [Unknown]
  - Product dose omission issue [Unknown]
